FAERS Safety Report 25510256 (Version 2)
Quarter: 2025Q3

REPORT INFORMATION
  Report Type: Spontaneous
  Country: US (occurrence: US)
  Receive Date: 20250703
  Receipt Date: 20250910
  Transmission Date: 20251020
  Serious: Yes (Disabling, Other)
  Sender: REGENERON
  Company Number: US-REGENERON PHARMACEUTICALS, INC.-2025-099667

PATIENT
  Sex: Female

DRUGS (12)
  1. EYLEA [Suspect]
     Active Substance: AFLIBERCEPT
     Indication: Neovascular age-related macular degeneration
  2. EYLEA [Suspect]
     Active Substance: AFLIBERCEPT
     Indication: Choroidal neovascularisation
  3. TYLENOL [Concomitant]
     Active Substance: ACETAMINOPHEN
     Indication: Product used for unknown indication
     Dosage: 1000 MG, EVERY 8 HOURS AS NEEDED
     Route: 048
  4. BUSPAR [Concomitant]
     Active Substance: BUSPIRONE HYDROCHLORIDE
     Indication: Anxiety
     Dosage: 1 TABLET THREE TIMES DAILY AS NEEDED
     Route: 048
     Dates: start: 20250709
  5. CHOLECALCIFEROL [Concomitant]
     Active Substance: CHOLECALCIFEROL
     Indication: Product used for unknown indication
     Dosage: 1 CAPSULE DAILY AT 0700 ON EMPTY STOMACH (STRENGTH: 2000 UNITS)
     Route: 048
  6. CROMOLYN SODIUM [Concomitant]
     Active Substance: CROMOLYN SODIUM
     Indication: Product used for unknown indication
     Route: 045
  7. CYCLOGYL [Concomitant]
     Active Substance: CYCLOPENTOLATE HYDROCHLORIDE
     Indication: Product used for unknown indication
     Dosage: 1 DROP (OPHTHALMIC SOLUTION) IN RIGHT EYE TWICE DAILY
     Route: 031
     Dates: start: 20250612
  8. DEXLANSOPRAZOLE DELAYED RELEASE [Concomitant]
     Active Substance: DEXLANSOPRAZOLE
     Indication: Product used for unknown indication
     Dosage: 1 CAPSULE EVERY MORNING
     Route: 048
     Dates: start: 20250325
  9. ILOTYCIN [ERYTHROMYCIN] [Concomitant]
     Indication: Product used for unknown indication
     Dosage: APPLY AS DIRECTED NIGHTLY (OPHTHALMIC OINTMENT 5MG/GM)
     Dates: start: 20250508
  10. ICAPS AREDS FORMULA [Concomitant]
     Indication: Product used for unknown indication
     Dosage: 2 CAPSULES IN MORNING
     Route: 048
  11. MIRALAX [Concomitant]
     Active Substance: POLYETHYLENE GLYCOL 3350
     Indication: Product used for unknown indication
     Dosage: 17 G DAILY (ORAL POWDER 17G/SCOOP)
     Route: 048
     Dates: start: 20210813
  12. PRED FORTE [Concomitant]
     Active Substance: PREDNISOLONE ACETATE
     Indication: Product used for unknown indication
     Dosage: 1 DROP IN RIGHT EYE FOUR TIMES DAILY (OPHTHALMIC SUSPENSION)
     Route: 031
     Dates: start: 20250630

REACTIONS (3)
  - Blindness [Recovering/Resolving]
  - Endophthalmitis [Unknown]
  - Blepharitis [Unknown]

NARRATIVE: CASE EVENT DATE: 20250501
